FAERS Safety Report 18758247 (Version 1)
Quarter: 2021Q1

REPORT INFORMATION
  Report Type: Spontaneous
  Country: US (occurrence: US)
  Receive Date: 20210119
  Receipt Date: 20210119
  Transmission Date: 20210419
  Serious: Yes (Hospitalization)
  Sender: FDA-Public Use
  Company Number: US-BAYER-2021-017743

PATIENT
  Age: 67 Year
  Sex: Male

DRUGS (1)
  1. RADIUM?223 DICHLORIDE [Suspect]
     Active Substance: RADIUM RA-223 DICHLORIDE
     Indication: PROSTATE CANCER METASTATIC
     Dosage: UNK

REACTIONS (4)
  - Blood electrolytes abnormal [Recovered/Resolved]
  - Tumour lysis syndrome [None]
  - Metabolic acidosis [Recovered/Resolved]
  - Acute kidney injury [None]
